FAERS Safety Report 12439924 (Version 1)
Quarter: 2016Q2

REPORT INFORMATION
  Report Type: Spontaneous
  Country: JP (occurrence: JP)
  Receive Date: 20160606
  Receipt Date: 20160606
  Transmission Date: 20160815
  Serious: Yes (Death, Other)
  Sender: FDA-Public Use
  Company Number: PHJP1997JP002624

PATIENT
  Age: 2 Year
  Sex: Male

DRUGS (8)
  1. MYSOLINE [Suspect]
     Active Substance: PRIMIDONE
     Dosage: 100 MG, UNK
     Route: 048
     Dates: start: 19970709, end: 19970714
  2. TEGRETOL [Suspect]
     Active Substance: CARBAMAZEPINE
     Dosage: 70 MG, UNK
     Route: 048
     Dates: start: 19970618, end: 19970624
  3. TEGRETOL [Suspect]
     Active Substance: CARBAMAZEPINE
     Dosage: 100 MG, UNK
     Route: 048
     Dates: start: 19970625, end: 19970630
  4. MYSOLINE [Suspect]
     Active Substance: PRIMIDONE
     Indication: EPILEPSY
     Dosage: 50 MG, UNK
     Route: 048
     Dates: start: 19970701, end: 19970708
  5. SELENICA-R [Suspect]
     Active Substance: VALPROATE SODIUM
     Dosage: 140 MG, UNK
     Route: 048
     Dates: start: 19970719, end: 19970722
  6. SELENICA-R [Suspect]
     Active Substance: VALPROATE SODIUM
     Dosage: 200 MG, UNK
     Route: 048
     Dates: start: 19970723
  7. TEGRETOL [Suspect]
     Active Substance: CARBAMAZEPINE
     Indication: EPILEPSY
     Dosage: 50 MG, UNK
     Route: 048
     Dates: start: 19970611, end: 19970617
  8. SELENICA-R [Suspect]
     Active Substance: VALPROATE SODIUM
     Indication: EPILEPSY
     Dosage: 70 MG, UNK
     Route: 048
     Dates: start: 19970715, end: 19970716

REACTIONS (5)
  - Lymphadenopathy [Recovering/Resolving]
  - Rash [Fatal]
  - Hepatic function abnormal [Fatal]
  - Pyrexia [Fatal]
  - Interstitial lung disease [Fatal]

NARRATIVE: CASE EVENT DATE: 19970623
